FAERS Safety Report 15896840 (Version 1)
Quarter: 2019Q1

REPORT INFORMATION
  Report Type: Spontaneous
  Country: US (occurrence: US)
  Receive Date: 20190131
  Receipt Date: 20190131
  Transmission Date: 20190417
  Serious: Yes (Death)
  Sender: FDA-Public Use
  Company Number: US-RIGEL PHARMACEUTICALS, INC.-2019FOS000030

PATIENT

DRUGS (1)
  1. TAVALISSE [Suspect]
     Active Substance: FOSTAMATINIB
     Indication: IMMUNE THROMBOCYTOPENIC PURPURA
     Dosage: 1 TABLET, TWICE A DAY
     Route: 048
     Dates: start: 20181112

REACTIONS (1)
  - Death [Fatal]
